FAERS Safety Report 10952026 (Version 2)
Quarter: 2015Q1

REPORT INFORMATION
  Report Type: Spontaneous
  Country: US (occurrence: US)
  Receive Date: 20150325
  Receipt Date: 20150331
  Transmission Date: 20150721
  Serious: Yes (Death)
  Sender: FDA-Public Use
  Company Number: US-ROCHE-1555908

PATIENT
  Sex: Female

DRUGS (5)
  1. FOLIC ACID. [Concomitant]
     Active Substance: FOLIC ACID
     Route: 065
  2. DIGOXIN. [Concomitant]
     Active Substance: DIGOXIN
     Indication: ANGINA PECTORIS
     Route: 048
  3. ERIVEDGE [Suspect]
     Active Substance: VISMODEGIB
     Indication: BASAL CELL CARCINOMA
     Route: 065
     Dates: start: 20131015, end: 20140113
  4. ATENOLOL. [Concomitant]
     Active Substance: ATENOLOL
     Indication: ANGINA PECTORIS
     Route: 048
  5. WARFARIN [Concomitant]
     Active Substance: WARFARIN
     Indication: ANGINA PECTORIS
     Dosage: 1/2 TABLET
     Route: 048

REACTIONS (2)
  - Fatigue [Fatal]
  - Weight decreased [Fatal]
